FAERS Safety Report 6108689-6 (Version None)
Quarter: 2009Q1

REPORT INFORMATION
  Report Type: 
  Country: None (occurrence: None)
  Receive Date: 20090305
  Receipt Date: 20090218
  Transmission Date: 20090719
  Serious: Yes (Hospitalization)
  Sender: FDA-Public Use
  Company Number: DSJ-2009-01587

PATIENT
  Age: 96 Year
  Sex: Female

DRUGS (4)
  1. OLMESARTAN MEDOXOMIL [Suspect]
     Indication: HYPERTENSION
     Dosage: 20 MG (20 MG, 1 IN 1 D), PER ORAL
     Route: 048
     Dates: start: 20070914, end: 20090108
  2. NITROL (GLYCERYL TRINITRATE) (TABLET) (GLYCERYL TRINITRATE) [Suspect]
     Indication: ANGINA PECTORIS
     Dosage: 40 MG (20 MG, 2 IN 1 D), PER ORAL
     Route: 048
     Dates: start: 20040210
  3. DOGMATYL (SULPIRIDE) (TABLET) (SULPIRIDE) [Suspect]
     Indication: PROPHYLAXIS
     Dosage: 100 MG (50 MG, 2 IN 1 D), PER ORAL
     Route: 048
     Dates: start: 20081031
  4. BIO THREE (BACTERIA NOS) (TABLET) (BACTERIA NOS) [Concomitant]

REACTIONS (8)
  - ACTIVITIES OF DAILY LIVING IMPAIRED [None]
  - ANOREXIA [None]
  - DEHYDRATION [None]
  - INAPPROPRIATE ANTIDIURETIC HORMONE SECRETION [None]
  - LACUNAR INFARCTION [None]
  - MUSCULAR WEAKNESS [None]
  - NASOPHARYNGITIS [None]
  - RENAL IMPAIRMENT [None]
